FAERS Safety Report 6095864-2 (Version None)
Quarter: 2009Q1

REPORT INFORMATION
  Report Type: 
  Country: None (occurrence: None)
  Receive Date: 20090227
  Receipt Date: 20080701
  Transmission Date: 20090719
  Serious: No
  Sender: FDA-Public Use
  Company Number: A0735595A

PATIENT
  Age: 27 Year
  Sex: Female

DRUGS (6)
  1. LAMICTAL [Suspect]
     Route: 048
     Dates: start: 20080610
  2. SEASONALE [Concomitant]
  3. LEXAPRO [Concomitant]
  4. ZYRTEC [Concomitant]
  5. FLONASE [Concomitant]
  6. IMITREX [Concomitant]

REACTIONS (3)
  - HEADACHE [None]
  - MEMORY IMPAIRMENT [None]
  - NAUSEA [None]
